FAERS Safety Report 13289716 (Version 1)
Quarter: 2017Q1

REPORT INFORMATION
  Report Type: Report from Study
  Country: US (occurrence: US)
  Receive Date: 20170302
  Receipt Date: 20170302
  Transmission Date: 20170428
  Serious: No
  Sender: FDA-Public Use
  Company Number: US-009507513-1702USA003706

PATIENT
  Sex: Female

DRUGS (5)
  1. PRAVACHOL [Suspect]
     Active Substance: PRAVASTATIN SODIUM
  2. CRESTOR [Suspect]
     Active Substance: ROSUVASTATIN CALCIUM
  3. FENOFIBRATE. [Suspect]
     Active Substance: FENOFIBRATE
  4. LIPITOR [Suspect]
     Active Substance: ATORVASTATIN CALCIUM
  5. ZOCOR [Suspect]
     Active Substance: SIMVASTATIN
     Route: 048

REACTIONS (1)
  - Limb discomfort [Unknown]
